FAERS Safety Report 12209531 (Version 1)
Quarter: 2016Q1

REPORT INFORMATION
  Report Type: Spontaneous
  Country: US (occurrence: US)
  Receive Date: 20160324
  Receipt Date: 20160324
  Transmission Date: 20160526
  Serious: No
  Sender: FDA-Public Use
  Company Number: US-ELI_LILLY_AND_COMPANY-US201602010257

PATIENT
  Sex: Female

DRUGS (2)
  1. RALOXIFENE HYDROCHLORIDE. [Suspect]
     Active Substance: RALOXIFENE HYDROCHLORIDE
     Indication: BREAST MASS
     Dosage: UNK, QOD
     Route: 048
     Dates: start: 20160222
  2. MIACALCIN [Concomitant]
     Active Substance: CALCITONIN SALMON
     Dosage: UNK, 3/W
     Route: 065

REACTIONS (2)
  - Arthralgia [Unknown]
  - Urticaria [Unknown]
